APPROVED DRUG PRODUCT: DOXYLAMINE SUCCINATE
Active Ingredient: DOXYLAMINE SUCCINATE
Strength: 25MG
Dosage Form/Route: TABLET;ORAL
Application: A040167 | Product #001
Applicant: L PERRIGO CO
Approved: Sep 18, 1996 | RLD: No | RS: No | Type: OTC